FAERS Safety Report 7632371-7 (Version None)
Quarter: 2011Q3

REPORT INFORMATION
  Report Type: 
  Country: None (occurrence: None)
  Receive Date: 20110725
  Receipt Date: 20110714
  Transmission Date: 20111222
  Serious: Yes (Death, Other)
  Sender: FDA-Public Use
  Company Number: GB-JNJFOC-20110707113

PATIENT
  Age: 25 Year
  Sex: Male

DRUGS (2)
  1. TEMAZEPAM [Suspect]
     Indication: PRODUCT USED FOR UNKNOWN INDICATION
     Route: 048
     Dates: start: 20070101, end: 20110101
  2. TRAMADOL HYDROCHLORIDE [Suspect]
     Indication: PAIN
     Route: 065
     Dates: end: 20110101

REACTIONS (2)
  - ACCIDENTAL OVERDOSE [None]
  - DEATH [None]
